FAERS Safety Report 19151987 (Version 1)
Quarter: 2021Q2

REPORT INFORMATION
  Report Type: Spontaneous
  Country: RS (occurrence: RS)
  Receive Date: 20210419
  Receipt Date: 20210419
  Transmission Date: 20210717
  Serious: Yes (Life-Threatening, Hospitalization)
  Sender: FDA-Public Use
  Company Number: RS-TEVA-2021-RS-1901631

PATIENT
  Age: 59 Year
  Sex: Female

DRUGS (7)
  1. SINTOPOZID [Suspect]
     Active Substance: ETOPOSIDE
     Indication: LUNG NEOPLASM MALIGNANT
     Route: 065
     Dates: start: 20210309, end: 20210310
  2. CISPLATIN. [Suspect]
     Active Substance: CISPLATIN
     Indication: LUNG NEOPLASM MALIGNANT
     Dosage: 110MGX1
     Route: 042
     Dates: start: 20210209, end: 20210309
  3. CONTROLOC [Concomitant]
     Active Substance: PANTOPRAZOLE SODIUM
     Dosage: CHRONIC THERAPY
     Route: 042
  4. ORAMORPH [Concomitant]
     Active Substance: MORPHINE SULFATE
     Indication: LUNG NEOPLASM MALIGNANT
     Dosage: CHRONIC THERAPY
     Route: 048
  5. RASETRON [Concomitant]
     Indication: LUNG NEOPLASM MALIGNANT
     Dosage: 2 MILLIGRAM DAILY; CHRONIC THERAPY
     Route: 048
  6. BERODUAL [Concomitant]
     Active Substance: FENOTEROL HYDROBROMIDE\IPRATROPIUM BROMIDE
     Indication: LUNG NEOPLASM MALIGNANT
     Dosage: 3X2 BREATH; CHRONIC THERAPY
     Route: 055
  7. DUROGESIC [Concomitant]
     Active Substance: FENTANYL
     Indication: LUNG NEOPLASM MALIGNANT
     Dosage: CHRONIC THERAPY
     Route: 062

REACTIONS (1)
  - Pancytopenia [Recovering/Resolving]

NARRATIVE: CASE EVENT DATE: 20210318
